FAERS Safety Report 4315149-1 (Version None)
Quarter: 2004Q1

REPORT INFORMATION
  Report Type: 
  Country: None (occurrence: None)
  Receive Date: 20040310
  Receipt Date: 20040303
  Transmission Date: 20041129
  Serious: Yes (Other)
  Sender: FDA-Public Use
  Company Number: DE-GLAXOSMITHKLINE-D0043300A

PATIENT
  Age: 32 Year
  Weight: 50 kg

DRUGS (1)
  1. ELMENDOS [Suspect]
     Indication: BIPOLAR DISORDER
     Dosage: 25MG PER DAY
     Route: 048
     Dates: start: 20040205, end: 20040224

REACTIONS (3)
  - ARTHRALGIA [None]
  - BACK PAIN [None]
  - SKIN DISORDER [None]
